FAERS Safety Report 11118013 (Version 3)
Quarter: 2015Q2

REPORT INFORMATION
  Report Type: Report from Study
  Country: HU (occurrence: HU)
  Receive Date: 20150518
  Receipt Date: 20150625
  Transmission Date: 20150821
  Serious: Yes (Hospitalization)
  Sender: FDA-Public Use
  Company Number: HU-ABBVIE-15K-076-1388709-00

PATIENT
  Sex: Male
  Weight: 80 kg

DRUGS (3)
  1. HUMIRA [Suspect]
     Active Substance: ADALIMUMAB
     Indication: ANKYLOSING SPONDYLITIS
     Route: 058
     Dates: start: 20150126, end: 20150408
  2. INDOMETHACIN. [Concomitant]
     Active Substance: INDOMETHACIN
     Indication: ANKYLOSING SPONDYLITIS
     Route: 054
     Dates: start: 1995
  3. BREXIN [PIROXICAM] [Concomitant]
     Active Substance: PIROXICAM BETADEX
     Indication: ANKYLOSING SPONDYLITIS
     Route: 048
     Dates: start: 2013, end: 2015

REACTIONS (2)
  - Nasopharyngitis [Unknown]
  - Lung adenocarcinoma metastatic [Not Recovered/Not Resolved]

NARRATIVE: CASE EVENT DATE: 2015
